FAERS Safety Report 6495715-8 (Version None)
Quarter: 2009Q4

REPORT INFORMATION
  Report Type: 
  Country: None (occurrence: None)
  Receive Date: 20091214
  Receipt Date: 20090831
  Transmission Date: 20100525
  Serious: Yes (Death)
  Sender: FDA-Public Use
  Company Number: US-BRISTOL-MYERS SQUIBB COMPANY-14728497

PATIENT
  Age: 35 Year
  Sex: Female

DRUGS (4)
  1. ABILIFY [Suspect]
     Indication: DEPRESSION
     Dosage: 1 DF- 2MG, 5MG, 10MG
     Route: 048
     Dates: start: 20090616
  2. PRISTIQ [Suspect]
     Route: 048
     Dates: start: 20090624
  3. ADDERALL 10 [Concomitant]
     Route: 048
     Dates: start: 20071212
  4. PROZAC [Concomitant]
     Route: 048
     Dates: start: 20080306

REACTIONS (1)
  - COMPLETED SUICIDE [None]
